FAERS Safety Report 18648754 (Version 1)
Quarter: 2020Q4

REPORT INFORMATION
  Report Type: Spontaneous
  Country: US (occurrence: US)
  Receive Date: 20201222
  Receipt Date: 20201222
  Transmission Date: 20210114
  Serious: Yes (Hospitalization)
  Sender: FDA-Public Use
  Company Number: US-MYLANLABS-2020M1102840

PATIENT
  Sex: Female

DRUGS (3)
  1. TUCATINIB [Concomitant]
     Active Substance: TUCATINIB
     Indication: BREAST CANCER FEMALE
  2. LOPERAMIDE [Suspect]
     Active Substance: LOPERAMIDE
     Indication: BREAST CANCER FEMALE
  3. TUCATINIB [Concomitant]
     Active Substance: TUCATINIB
     Dosage: UNK

REACTIONS (1)
  - Breast cancer female [Unknown]
